FAERS Safety Report 11594062 (Version 1)
Quarter: 2015Q4

REPORT INFORMATION
  Report Type: Report from Study
  Country: VE (occurrence: VE)
  Receive Date: 20151005
  Receipt Date: 20151005
  Transmission Date: 20160304
  Serious: Yes (Death)
  Sender: FDA-Public Use
  Company Number: PHHY2015VE120004

PATIENT
  Age: 62 Year
  Sex: Male

DRUGS (1)
  1. SANDOSTATIN LAR DEPOT [Suspect]
     Active Substance: OCTREOTIDE ACETATE
     Indication: NEUROENDOCRINE TUMOUR
     Dosage: 20 MG, QMO
     Route: 065
     Dates: start: 201409, end: 201412

REACTIONS (9)
  - Blood creatinine increased [Unknown]
  - Condition aggravated [Unknown]
  - Death [Fatal]
  - Blood urea increased [Unknown]
  - Drug intolerance [Unknown]
  - Swelling [Unknown]
  - Single functional kidney [Unknown]
  - Renal impairment [Unknown]
  - Fluid retention [Unknown]

NARRATIVE: CASE EVENT DATE: 20150331
